FAERS Safety Report 4595650-6 (Version None)
Quarter: 2005Q1

REPORT INFORMATION
  Report Type: 
  Country: None (occurrence: None)
  Receive Date: 20050223
  Receipt Date: 20050223
  Transmission Date: 20050727
  Serious: Yes (Other)
  Sender: FDA-Public Use
  Company Number: None

PATIENT
  Age: 50 Year
  Sex: Male
  Weight: 72.5755 kg

DRUGS (1)
  1. CIPRO [Suspect]
     Indication: PREOPERATIVE CARE
     Dosage: IV
     Route: 042

REACTIONS (1)
  - RASH [None]
